FAERS Safety Report 15854328 (Version 2)
Quarter: 2019Q3

REPORT INFORMATION
  Report Type: Spontaneous
  Country: GR (occurrence: GR)
  Receive Date: 20190122
  Receipt Date: 20190719
  Transmission Date: 20191004
  Serious: Yes (Other)
  Sender: FDA-Public Use
  Company Number: GR-JNJFOC-20190118195

PATIENT
  Age: 30 Year
  Sex: Female

DRUGS (1)
  1. SPORANOX [Suspect]
     Active Substance: ITRACONAZOLE
     Indication: ONYCHOMYCOSIS
     Dosage: 2 PILLS PER DAY FOR 15 DAYS PER MONTH
     Route: 048
     Dates: start: 201805, end: 20180828

REACTIONS (1)
  - Exposure during pregnancy [Recovered/Resolved]
